FAERS Safety Report 24422337 (Version 1)
Quarter: 2024Q4

REPORT INFORMATION
  Report Type: Report from Study
  Country: US (occurrence: US)
  Receive Date: 20241010
  Receipt Date: 20241010
  Transmission Date: 20250114
  Serious: Yes (Hospitalization)
  Sender: ACADIA PHARMACEUTICALS
  Company Number: US-ACADIA PHARMACEUTICALS INC.-ACA-2024-PIM-006073

PATIENT
  Sex: Male

DRUGS (35)
  1. NUPLAZID [Suspect]
     Active Substance: PIMAVANSERIN TARTRATE
     Indication: Mental disorder
     Dosage: 34 MILLIGRAM, QD
     Route: 048
     Dates: start: 20240918
  2. NUPLAZID [Suspect]
     Active Substance: PIMAVANSERIN TARTRATE
     Indication: Delusion
  3. TIOPRONIN [Concomitant]
     Active Substance: TIOPRONIN
  4. SYMBICORT [Concomitant]
     Active Substance: BUDESONIDE\FORMOTEROL FUMARATE DIHYDRATE
  5. BUPROPION [Concomitant]
     Active Substance: BUPROPION
  6. DONEPEZIL [Concomitant]
     Active Substance: DONEPEZIL
  7. LATANOPROST [Concomitant]
     Active Substance: LATANOPROST
  8. VITAMIN B COMPLEX [Concomitant]
     Active Substance: CYANOCOBALAMIN\DEXPANTHENOL\NIACINAMIDE\PYRIDOXINE HYDROCHLORIDE\RIBOFLAVIN 5^-PHOSPHATE SODIUM\THIA
  9. MONTELUKAST SODIUM [Concomitant]
     Active Substance: MONTELUKAST SODIUM
  10. VITAMIN D3 [Concomitant]
     Active Substance: CHOLECALCIFEROL
  11. DOCUSATE SODIUM [Concomitant]
     Active Substance: DOCUSATE SODIUM
  12. VITAMIN B12 [Concomitant]
     Active Substance: CYANOCOBALAMIN
  13. DILTIAZEM [Concomitant]
     Active Substance: DILTIAZEM
  14. ZINC [Concomitant]
     Active Substance: ZINC
  15. SIMVASTATIN [Concomitant]
     Active Substance: SIMVASTATIN
  16. OSTEO-BI-FLEX [Concomitant]
  17. MINERALS\VITAMINS [Concomitant]
     Active Substance: MINERALS\VITAMINS
  18. DABIGATRAN ETEXILATE [Concomitant]
     Active Substance: DABIGATRAN ETEXILATE
  19. DULOXETINE [Concomitant]
     Active Substance: DULOXETINE
  20. CALCIUM [Concomitant]
     Active Substance: CALCIUM
  21. MELATONIN [Concomitant]
     Active Substance: MELATONIN
  22. VITAMIN C [Concomitant]
     Active Substance: ASCORBIC ACID
  23. TIZANIDINE [Concomitant]
     Active Substance: TIZANIDINE
  24. GUAIFENESIN [Concomitant]
     Active Substance: GUAIFENESIN
  25. AMIODARONE [Concomitant]
     Active Substance: AMIODARONE
  26. CARBIDOPA LEVODOPA [Concomitant]
     Active Substance: CARBIDOPA\LEVODOPA
  27. CLONAZEPAM [Concomitant]
     Active Substance: CLONAZEPAM
  28. DORZOLAMIDE [Concomitant]
     Active Substance: DORZOLAMIDE
  29. ALBUTEROL SULFATE [Concomitant]
     Active Substance: ALBUTEROL SULFATE
  30. ESOMEPRAZOLE MAGNESIUM [Concomitant]
     Active Substance: ESOMEPRAZOLE MAGNESIUM
  31. BRIMONIDINE;DORZOLAMIDE [Concomitant]
  32. SYFOVRE [Concomitant]
     Active Substance: PEGCETACOPLAN
  33. VITAMINS [Concomitant]
     Active Substance: VITAMINS
  34. HYDROCODONE BITARTRATE AND ACETAMINOPHEN [Concomitant]
     Active Substance: ACETAMINOPHEN\HYDROCODONE BITARTRATE
  35. OSTEO BI-FLEX [CHONDROITIN SULFATE;GLUCOSAMINE HYDROCHLORIDE] [Concomitant]

REACTIONS (1)
  - Impaired healing [Not Recovered/Not Resolved]
